FAERS Safety Report 5108246-4 (Version None)
Quarter: 2006Q3

REPORT INFORMATION
  Report Type: 
  Country: None (occurrence: None)
  Receive Date: 20060914
  Receipt Date: 20060914
  Transmission Date: 20061208
  Serious: Yes (Hospitalization)
  Sender: FDA-Public Use
  Company Number: None

PATIENT
  Age: 57 Year
  Sex: Male

DRUGS (15)
  1. PIPERACILLIN AND TAZOBACTAM [Suspect]
     Dosage: IV Q8H
     Route: 042
     Dates: start: 20060705, end: 20060708
  2. HEPARIN [Suspect]
     Dosage: 5000 UNITS SC Q 12H
     Dates: start: 20060705, end: 20060707
  3. CIPROFLOXACIN IN DEXTROSE 5% [Concomitant]
  4. CLONAZEPAM [Concomitant]
  5. COAL TAR TOPICAL LIQUID [Concomitant]
  6. DEXTROSE 50% [Concomitant]
  7. DEXTROSE [Concomitant]
  8. DOCUSATE SODIUM [Concomitant]
  9. FERROUS SULFATE TAB [Concomitant]
  10. FOLIC ACID [Concomitant]
  11. HEPARIN [Concomitant]
  12. HYDROCORTISONE SODIUM SUCCINATE [Concomitant]
  13. HUMULIN R [Concomitant]
  14. ACETAMINOPHEN [Concomitant]
  15. CALCIPOTRIENE OINT [Concomitant]

REACTIONS (1)
  - PLATELET COUNT DECREASED [None]
